FAERS Safety Report 14706328 (Version 3)
Quarter: 2018Q2

REPORT INFORMATION
  Report Type: Report from Study
  Country: CA (occurrence: CA)
  Receive Date: 20180402
  Receipt Date: 20180427
  Transmission Date: 20180711
  Serious: Yes (Death)
  Sender: FDA-Public Use
  Company Number: CA-HLSUS-2018-CA-000552

PATIENT
  Age: 84 Year
  Sex: Male
  Weight: 54.43 kg

DRUGS (1)
  1. CLOZARIL [Suspect]
     Active Substance: CLOZAPINE
     Indication: PSYCHOTIC DISORDER
     Dosage: 12.5 MG
     Route: 048
     Dates: start: 20180205

REACTIONS (1)
  - Death [Fatal]

NARRATIVE: CASE EVENT DATE: 20180402
